FAERS Safety Report 9835354 (Version 1)
Quarter: 2014Q1

REPORT INFORMATION
  Report Type: Spontaneous
  Country: US (occurrence: US)
  Receive Date: 20140122
  Receipt Date: 20140122
  Transmission Date: 20141002
  Serious: No
  Sender: FDA-Public Use
  Company Number: US-BRISTOL-MYERS SQUIBB COMPANY-19494723

PATIENT
  Age: 82 Year
  Sex: Female
  Weight: 55.78 kg

DRUGS (9)
  1. ELIQUIS [Suspect]
     Indication: ATRIAL FIBRILLATION
     Dates: start: 20130920
  2. ASPIRIN [Suspect]
     Dosage: REDUCED TO 81MG
  3. THYROID [Concomitant]
     Dosage: THYROID PILL
  4. TOPROL [Concomitant]
  5. NORVASC [Concomitant]
  6. CALTRATE [Concomitant]
  7. IRON [Concomitant]
     Dosage: IRON PILL
  8. VITAMIN B12 [Concomitant]
  9. VITAMIN A [Concomitant]

REACTIONS (2)
  - Paraesthesia oral [Unknown]
  - Sensory disturbance [Unknown]
